FAERS Safety Report 6599639-7 (Version None)
Quarter: 2010Q1

REPORT INFORMATION
  Report Type: 
  Country: None (occurrence: None)
  Receive Date: 20100224
  Receipt Date: 20100215
  Transmission Date: 20100710
  Serious: Yes (Other)
  Sender: FDA-Public Use
  Company Number: US-ASTRAZENECA-2010SE06556

PATIENT
  Sex: Male
  Weight: 88.4 kg

DRUGS (6)
  1. PRILOSEC [Suspect]
     Indication: HIATUS HERNIA
     Route: 048
     Dates: end: 20100101
  2. PLAVIX [Suspect]
     Indication: CORONARY ARTERIAL STENT INSERTION
     Route: 048
  3. VERAPAMIL [Concomitant]
  4. ACCUPRIL [Concomitant]
  5. ACCOLATE [Concomitant]
  6. ISOSORBIDE [Concomitant]

REACTIONS (2)
  - CORONARY ARTERIAL STENT INSERTION [None]
  - DEVICE OCCLUSION [None]
